FAERS Safety Report 5156906-1 (Version None)
Quarter: 2006Q4

REPORT INFORMATION
  Report Type: 
  Country: None (occurrence: None)
  Receive Date: 20060918
  Receipt Date: 20060717
  Transmission Date: 20070319
  Serious: Yes (Other)
  Sender: FDA-Public Use
  Company Number: US-JNJFOC-20060700309

PATIENT
  Age: 33 Year
  Sex: Female
  Weight: 64.4108 kg

DRUGS (4)
  1. TOPAMAX [Suspect]
     Indication: MIGRAINE
     Dosage: 200 MG 1 IN 1 DAY ORAL
     Route: 048
     Dates: start: 20050101
  2. ULTRAM [Concomitant]
  3. ZYRTEC [Concomitant]
  4. MIRALAX [Concomitant]

REACTIONS (4)
  - AGGRESSION [None]
  - DEPRESSION [None]
  - DISTURBANCE IN ATTENTION [None]
  - MENTAL IMPAIRMENT [None]
